FAERS Safety Report 8763370 (Version 4)
Quarter: 2013Q4

REPORT INFORMATION
  Report Type: Spontaneous
  Country: US (occurrence: US)
  Receive Date: 20120831
  Receipt Date: 20131118
  Transmission Date: 20140711
  Serious: Yes (Hospitalization, Other)
  Sender: FDA-Public Use
  Company Number: US-009507513-1208USA008457

PATIENT
  Sex: Female
  Weight: 106.58 kg

DRUGS (2)
  1. NUVARING [Suspect]
     Indication: CONTRACEPTION
     Dosage: UNK
     Route: 067
     Dates: start: 200907, end: 201007
  2. NUVARING [Suspect]
     Dosage: UNK
     Route: 067
     Dates: start: 201003, end: 20100725

REACTIONS (6)
  - Abortion [Unknown]
  - Pulmonary embolism [Unknown]
  - Maternal exposure before pregnancy [Unknown]
  - Uterine dilation and curettage [Unknown]
  - Fluid retention [Unknown]
  - Paraesthesia [Unknown]
